FAERS Safety Report 5827798-X (Version None)
Quarter: 2008Q3

REPORT INFORMATION
  Report Type: 
  Country: None (occurrence: None)
  Receive Date: 20080730
  Receipt Date: 20080724
  Transmission Date: 20090109
  Serious: Yes (Other)
  Sender: FDA-Public Use
  Company Number: US-MERCK-0807USA04818

PATIENT
  Age: 14 Year
  Sex: Female

DRUGS (5)
  1. SINGULAIR [Suspect]
     Indication: RHINITIS ALLERGIC
     Route: 048
     Dates: start: 20060712, end: 20070425
  2. ZYRTEC [Concomitant]
     Route: 065
  3. FLONASE [Concomitant]
     Route: 065
  4. SINGULAIR [Suspect]
     Route: 048
     Dates: start: 20070425, end: 20080418
  5. SINGULAIR [Suspect]
     Route: 048
     Dates: start: 20080701

REACTIONS (5)
  - ANXIETY [None]
  - DEPRESSIVE SYMPTOM [None]
  - INTENTIONAL SELF-INJURY [None]
  - MOOD ALTERED [None]
  - SUICIDAL IDEATION [None]
